FAERS Safety Report 26080464 (Version 1)
Quarter: 2025Q4

REPORT INFORMATION
  Report Type: Other
  Country: US (occurrence: US)
  Receive Date: 20251124
  Receipt Date: 20251124
  Transmission Date: 20260118
  Serious: Yes (Hospitalization)
  Sender: INTERCEPT PHARMACEUTICALS
  Company Number: US-INTERCEPTP-2025-AER-08030

PATIENT
  Sex: Female
  Weight: 89.4 kg

DRUGS (24)
  1. OCALIVA [Suspect]
     Active Substance: OBETICHOLIC ACID
     Indication: Primary biliary cholangitis
     Dates: start: 20210202
  2. OCALIVA [Suspect]
     Active Substance: OBETICHOLIC ACID
     Indication: Product use in unapproved indication
     Dates: end: 202409
  3. OCALIVA [Suspect]
     Active Substance: OBETICHOLIC ACID
     Indication: Product use in unapproved indication
  4. URSODIOL [Concomitant]
     Active Substance: URSODIOL
  5. OPSUMIT [Concomitant]
     Active Substance: MACITENTAN
  6. CALCIUM\CHOLECALCIFEROL [Concomitant]
     Active Substance: CALCIUM\CHOLECALCIFEROL
  7. ECOTRIN [Concomitant]
     Active Substance: ASPIRIN
  8. HYDROXYZINE HYDROCHLORIDE [Concomitant]
     Active Substance: HYDROXYZINE HYDROCHLORIDE
  9. IRON [Concomitant]
     Active Substance: IRON
  10. LASIX [Concomitant]
     Active Substance: FUROSEMIDE
  11. LIPITOR [Concomitant]
     Active Substance: ATORVASTATIN CALCIUM
  12. MODERNA COVID-19 VACCINE [Concomitant]
     Active Substance: ELASOMERAN
  13. PANTOPRAZOLE SODIUM [Concomitant]
     Active Substance: PANTOPRAZOLE SODIUM
  14. POTASSIUM CHLORIDE [Concomitant]
     Active Substance: POTASSIUM CHLORIDE
  15. PREDNISOLONE ACETATE [Concomitant]
     Active Substance: PREDNISOLONE ACETATE
  16. REFRESH CLASSIC LUBRICANT EYE DROPS [Concomitant]
  17. REPATHA [Concomitant]
     Active Substance: EVOLOCUMAB
  18. UBIQUINOL [Concomitant]
     Active Substance: UBIQUINOL
  19. VITAMIN B COMPLEX [Concomitant]
     Active Substance: CYANOCOBALAMIN\DEXPANTHENOL\NIACINAMIDE\PYRIDOXINE HYDROCHLORIDE\RIBOFLAVIN 5^-PHOSPHATE SODIUM\THIA
  20. VITAMIN D3 [Concomitant]
     Active Substance: CHOLECALCIFEROL
  21. SILDENAFIL CITRATE [Concomitant]
     Active Substance: SILDENAFIL CITRATE
  22. PREDNISONE [Concomitant]
     Active Substance: PREDNISONE
  23. UNSPECIFIED INGREDIENT [Concomitant]
     Active Substance: UNSPECIFIED INGREDIENT
     Indication: Respiratory syncytial virus immunisation
  24. COVID-19 VACCINE [Concomitant]
     Indication: COVID-19 immunisation

REACTIONS (1)
  - Hospitalisation [Recovered/Resolved]
